FAERS Safety Report 14295615 (Version 1)
Quarter: 2017Q4

REPORT INFORMATION
  Report Type: Spontaneous
  Country: US (occurrence: US)
  Receive Date: 20171215
  Receipt Date: 20171215
  Transmission Date: 20180321
  Serious: Yes (Hospitalization)
  Sender: FDA-Public Use
  Company Number: None

PATIENT
  Age: 69 Year
  Sex: Female
  Weight: 59.5 kg

DRUGS (1)
  1. NOLVADEX [Suspect]
     Active Substance: TAMOXIFEN CITRATE
     Dates: end: 20171112

REACTIONS (10)
  - Abdominal distension [None]
  - Pleural effusion [None]
  - Vomiting [None]
  - Hypokalaemia [None]
  - Lipase increased [None]
  - Ascites [None]
  - Nausea [None]
  - Intestinal obstruction [None]
  - Abdominal pain [None]
  - Anaemia [None]

NARRATIVE: CASE EVENT DATE: 20171119
